FAERS Safety Report 16107914 (Version 1)
Quarter: 2019Q1

REPORT INFORMATION
  Report Type: Spontaneous
  Country: US (occurrence: US)
  Receive Date: 20190322
  Receipt Date: 20190322
  Transmission Date: 20190418
  Serious: No
  Sender: FDA-Public Use
  Company Number: US-TEVA-2019-US-1019751

PATIENT
  Sex: Female
  Weight: 70.31 kg

DRUGS (1)
  1. ESCITALOPRAM OXALATE. [Suspect]
     Active Substance: ESCITALOPRAM OXALATE
     Indication: ANXIETY

REACTIONS (5)
  - Pain [Unknown]
  - Drug ineffective [Unknown]
  - Asthenia [Unknown]
  - Adverse drug reaction [Unknown]
  - Dizziness [Unknown]
